FAERS Safety Report 13839780 (Version 1)
Quarter: 2017Q3

REPORT INFORMATION
  Report Type: Spontaneous
  Country: BR (occurrence: BR)
  Receive Date: 20170807
  Receipt Date: 20170807
  Transmission Date: 20171127
  Serious: Yes (Other)
  Sender: FDA-Public Use
  Company Number: BR-JNJFOC-20170722511

PATIENT
  Age: 49 Year
  Sex: Male

DRUGS (4)
  1. MORPHINE [Concomitant]
     Active Substance: MORPHINE
     Indication: PAIN
  2. DIAZEPAM. [Concomitant]
     Active Substance: DIAZEPAM
     Indication: PAIN
  3. DALINVI [Suspect]
     Active Substance: DARATUMUMAB
     Indication: PRODUCT USED FOR UNKNOWN INDICATION
  4. DIPYRONE [Concomitant]
     Active Substance: DIPYRONE
     Indication: PAIN

REACTIONS (10)
  - Diarrhoea [Not Recovered/Not Resolved]
  - Infusion related reaction [Unknown]
  - Vomiting [Unknown]
  - Bruxism [Unknown]
  - Fatigue [Not Recovered/Not Resolved]
  - Asphyxia [Unknown]
  - Sensory disturbance [Unknown]
  - Increased upper airway secretion [Unknown]
  - Chills [Unknown]
  - Bone pain [Unknown]

NARRATIVE: CASE EVENT DATE: 201707
